FAERS Safety Report 23501865 (Version 1)
Quarter: 2024Q1

REPORT INFORMATION
  Report Type: Spontaneous
  Country: IT (occurrence: IT)
  Receive Date: 20240208
  Receipt Date: 20240208
  Transmission Date: 20240410
  Serious: Yes (Other)
  Sender: FDA-Public Use
  Company Number: None

PATIENT
  Age: 48 Year
  Sex: Female
  Weight: 70 kg

DRUGS (2)
  1. RUXIENCE [Suspect]
     Active Substance: RITUXIMAB-PVVR
     Indication: Optic neuritis
     Dosage: 1000 MG (1 ADMINISTRATION EVERY 15 DAYS)
     Route: 042
     Dates: start: 20231227, end: 20240122
  2. IBUPROFEN [Suspect]
     Active Substance: IBUPROFEN
     Indication: Pyrexia
     Dosage: TOOK NUROFEN FOR FEVER ABOUT 10 DAYS BEFORE THE LESIONS APPEARED
     Route: 048
     Dates: start: 202401

REACTIONS (2)
  - Erythema multiforme [Not Recovered/Not Resolved]
  - Off label use [Unknown]

NARRATIVE: CASE EVENT DATE: 20240127
